FAERS Safety Report 19514023 (Version 2)
Quarter: 2025Q4

REPORT INFORMATION
  Report Type: Spontaneous
  Country: EU (occurrence: EU)
  Receive Date: 20210709
  Receipt Date: 20251210
  Transmission Date: 20260117
  Serious: Yes (Other)
  Sender: MYLAN
  Company Number: EU-BAXTER-2020BAX022607

PATIENT
  Age: 26 Year
  Sex: Male

DRUGS (28)
  1. METHOTREXATE [Suspect]
     Active Substance: METHOTREXATE
     Indication: Prophylaxis
     Dosage: 2 CYCLES ADMINISTERED (HIGH DOSE
  2. METHOTREXATE [Suspect]
     Active Substance: METHOTREXATE
     Dosage: 2 CYCLES ADMINISTERED (HIGH DOSE
     Route: 065
  3. METHOTREXATE [Suspect]
     Active Substance: METHOTREXATE
     Dosage: 2 CYCLES ADMINISTERED (HIGH DOSE
     Route: 065
  4. METHOTREXATE [Suspect]
     Active Substance: METHOTREXATE
     Dosage: 2 CYCLES ADMINISTERED (HIGH DOSE
  5. LENALIDOMIDE [Suspect]
     Active Substance: LENALIDOMIDE
     Indication: Diffuse large B-cell lymphoma stage I
     Dosage: 6 CYCLES ADMINISTERED IN TOTAL R2-CHOP THERAPY
  6. LENALIDOMIDE [Suspect]
     Active Substance: LENALIDOMIDE
     Dosage: 6 CYCLES ADMINISTERED IN TOTAL R2-CHOP THERAPY
     Route: 065
  7. LENALIDOMIDE [Suspect]
     Active Substance: LENALIDOMIDE
     Dosage: 6 CYCLES ADMINISTERED IN TOTAL R2-CHOP THERAPY
     Route: 065
  8. LENALIDOMIDE [Suspect]
     Active Substance: LENALIDOMIDE
     Dosage: 6 CYCLES ADMINISTERED IN TOTAL R2-CHOP THERAPY
  9. VINCRISTINE [Suspect]
     Active Substance: VINCRISTINE
     Indication: Diffuse large B-cell lymphoma stage I
     Dosage: 6 CYCLES ADMINISTERED IN TOTAL R2-CHOP THERAPY
  10. VINCRISTINE [Suspect]
     Active Substance: VINCRISTINE
     Dosage: 6 CYCLES ADMINISTERED IN TOTAL R2-CHOP THERAPY
     Route: 065
  11. VINCRISTINE [Suspect]
     Active Substance: VINCRISTINE
     Dosage: 6 CYCLES ADMINISTERED IN TOTAL R2-CHOP THERAPY
     Route: 065
  12. VINCRISTINE [Suspect]
     Active Substance: VINCRISTINE
     Dosage: 6 CYCLES ADMINISTERED IN TOTAL R2-CHOP THERAPY
  13. PREDNISONE [Suspect]
     Active Substance: PREDNISONE
     Indication: Diffuse large B-cell lymphoma stage I
     Dosage: 6 CYCLES ADMINISTERED IN TOTAL R2-CHOP THERAPY
  14. PREDNISONE [Suspect]
     Active Substance: PREDNISONE
     Dosage: 6 CYCLES ADMINISTERED IN TOTAL R2-CHOP THERAPY
     Route: 065
  15. PREDNISONE [Suspect]
     Active Substance: PREDNISONE
     Dosage: 6 CYCLES ADMINISTERED IN TOTAL R2-CHOP THERAPY
     Route: 065
  16. PREDNISONE [Suspect]
     Active Substance: PREDNISONE
     Dosage: 6 CYCLES ADMINISTERED IN TOTAL R2-CHOP THERAPY
  17. RITUXIMAB [Suspect]
     Active Substance: RITUXIMAB
     Indication: Diffuse large B-cell lymphoma stage I
     Dosage: 6 CYCLES ADMINISTERED IN TOTAL R2-CHOP THERAPY
  18. RITUXIMAB [Suspect]
     Active Substance: RITUXIMAB
     Dosage: 6 CYCLES ADMINISTERED IN TOTAL R2-CHOP THERAPY
     Route: 065
  19. RITUXIMAB [Suspect]
     Active Substance: RITUXIMAB
     Dosage: 6 CYCLES ADMINISTERED IN TOTAL R2-CHOP THERAPY
     Route: 065
  20. RITUXIMAB [Suspect]
     Active Substance: RITUXIMAB
     Dosage: 6 CYCLES ADMINISTERED IN TOTAL R2-CHOP THERAPY
  21. CYCLOPHOSPHAMIDE [Suspect]
     Active Substance: CYCLOPHOSPHAMIDE
     Indication: Diffuse large B-cell lymphoma stage I
     Dosage: 6 CYCLES ADMINISTERED IN TOTAL R2-CHOP THERAPY
  22. CYCLOPHOSPHAMIDE [Suspect]
     Active Substance: CYCLOPHOSPHAMIDE
     Dosage: 6 CYCLES ADMINISTERED IN TOTAL R2-CHOP THERAPY
     Route: 065
  23. CYCLOPHOSPHAMIDE [Suspect]
     Active Substance: CYCLOPHOSPHAMIDE
     Dosage: 6 CYCLES ADMINISTERED IN TOTAL R2-CHOP THERAPY
     Route: 065
  24. CYCLOPHOSPHAMIDE [Suspect]
     Active Substance: CYCLOPHOSPHAMIDE
     Dosage: 6 CYCLES ADMINISTERED IN TOTAL R2-CHOP THERAPY
  25. DOXORUBICIN [Suspect]
     Active Substance: DOXORUBICIN
     Indication: Diffuse large B-cell lymphoma stage I
     Dosage: 6 CYCLES ADMINISTERED IN TOTAL R2-CHOP THERAPY
  26. DOXORUBICIN [Suspect]
     Active Substance: DOXORUBICIN
     Dosage: 6 CYCLES ADMINISTERED IN TOTAL R2-CHOP THERAPY
     Route: 065
  27. DOXORUBICIN [Suspect]
     Active Substance: DOXORUBICIN
     Dosage: 6 CYCLES ADMINISTERED IN TOTAL R2-CHOP THERAPY
     Route: 065
  28. DOXORUBICIN [Suspect]
     Active Substance: DOXORUBICIN
     Dosage: 6 CYCLES ADMINISTERED IN TOTAL R2-CHOP THERAPY

REACTIONS (1)
  - Disease recurrence [Unknown]
